FAERS Safety Report 26157723 (Version 1)
Quarter: 2025Q4

REPORT INFORMATION
  Report Type: Report from Study
  Country: JP (occurrence: JP)
  Receive Date: 20251215
  Receipt Date: 20251215
  Transmission Date: 20260118
  Serious: Yes (Hospitalization, Other)
  Sender: NIPPON SHINYAKU
  Company Number: JP-NIPPON SHINYAKU-NIP-2022-000041

PATIENT

DRUGS (26)
  1. VILTEPSO [Suspect]
     Active Substance: VILTOLARSEN
     Indication: Duchenne muscular dystrophy
     Dosage: 80 MG/KG, QWK
     Route: 041
     Dates: start: 20210720, end: 202207
  2. VILTEPSO [Suspect]
     Active Substance: VILTOLARSEN
     Dosage: 80 MG/KG, QWK
     Route: 041
     Dates: start: 20220701, end: 20220721
  3. VILTEPSO [Suspect]
     Active Substance: VILTOLARSEN
     Dosage: 80 MG/KG, QWK
     Route: 041
     Dates: start: 20220802
  4. PREDNISOLONE [Concomitant]
     Active Substance: PREDNISOLONE
     Indication: Duchenne muscular dystrophy
     Dosage: 5 MILLIGRAM
     Route: 065
     Dates: start: 20091225, end: 20240301
  5. ALFAROL [Concomitant]
     Active Substance: ALFACALCIDOL
     Indication: Prophylaxis
     Dosage: 0.5 MICROGRAM
     Route: 065
  6. ACETAMINOPHEN [Concomitant]
     Active Substance: ACETAMINOPHEN
     Indication: Headache
     Dosage: 500 MILLIGRAM
     Route: 065
  7. ENALAPRIL MALEATE [Concomitant]
     Active Substance: ENALAPRIL MALEATE
     Indication: Prophylaxis
     Dosage: 0.625 MILLIGRAM
     Route: 065
     Dates: start: 20211130, end: 20211227
  8. ENALAPRIL MALEATE [Concomitant]
     Active Substance: ENALAPRIL MALEATE
     Dosage: 1.25 MILLIGRAM
     Route: 065
     Dates: start: 20211228, end: 20220117
  9. ENALAPRIL MALEATE [Concomitant]
     Active Substance: ENALAPRIL MALEATE
     Dosage: 2.5 MILLIGRAM
     Route: 065
     Dates: start: 20220118, end: 20220518
  10. BIFIDOBACTERIUM SPP. [Concomitant]
     Active Substance: BIFIDOBACTERIUM SPP.
     Indication: Prophylaxis
     Dosage: 3 DF
     Route: 065
     Dates: start: 20220329, end: 20220429
  11. BIFIDOBACTERIUM SPP. [Concomitant]
     Active Substance: BIFIDOBACTERIUM SPP.
     Dosage: 3 DF
     Route: 065
     Dates: start: 20220721
  12. DIFFERIN [Concomitant]
     Active Substance: ADAPALENE
     Indication: Acne
     Dosage: UNK
     Route: 065
     Dates: start: 20220329
  13. DIFFERIN [Concomitant]
     Active Substance: ADAPALENE
     Dosage: 1 G
     Route: 065
     Dates: start: 20230110
  14. LOSARTAN [Concomitant]
     Active Substance: LOSARTAN
     Indication: Cardiac failure
     Dosage: 50 MG
     Route: 065
     Dates: start: 20220517, end: 20220613
  15. ENTRESTO [Concomitant]
     Active Substance: SACUBITRIL\VALSARTAN
     Indication: Cardiac failure
     Dosage: 100 MILLIGRAM
     Route: 065
     Dates: start: 20220920
  16. ENTRESTO [Concomitant]
     Active Substance: SACUBITRIL\VALSARTAN
     Dosage: 200 MILLIGRAM
     Route: 065
     Dates: start: 20220920
  17. CARBOCYSTEINE [Concomitant]
     Active Substance: CARBOCYSTEINE
     Indication: Upper respiratory tract infection
     Dosage: 1500 MILLIGRAM
     Route: 065
     Dates: start: 20220225
  18. AMBROXOL HYDROCHLORIDE [Concomitant]
     Active Substance: AMBROXOL HYDROCHLORIDE
     Indication: Upper respiratory tract infection
     Dosage: 45 MILLIGRAM
     Route: 065
     Dates: start: 20220225
  19. CLARITHROMYCIN [Concomitant]
     Active Substance: CLARITHROMYCIN
     Indication: Upper respiratory tract infection
     Dosage: 400 MILLIGRAM
     Route: 065
     Dates: start: 20220218, end: 20220225
  20. ASVERIN (TIPEPIDINE HIBENZATE) [Concomitant]
     Active Substance: TIPEPIDINE HIBENZATE
     Indication: Upper respiratory tract infection
     Dosage: 60 MG
     Route: 065
     Dates: start: 20220218, end: 20220225
  21. ASVERIN (TIPEPIDINE HIBENZATE) [Concomitant]
     Active Substance: TIPEPIDINE HIBENZATE
     Dosage: 60 MG
     Route: 065
     Dates: start: 20230131
  22. AUGMENTIN [Concomitant]
     Active Substance: AMOXICILLIN\CLAVULANATE POTASSIUM
     Indication: Cardiac failure
     Dosage: 3 DF
     Route: 065
     Dates: start: 20220728, end: 20220801
  23. CARVEDILOL [Concomitant]
     Active Substance: CARVEDILOL
     Indication: Cardiac failure
     Dosage: 1.25 MG
     Route: 065
     Dates: start: 20221220, end: 20230313
  24. CARVEDILOL [Concomitant]
     Active Substance: CARVEDILOL
     Dosage: 2.5 MG
     Route: 065
     Dates: start: 20230314, end: 20230609
  25. CARVEDILOL [Concomitant]
     Active Substance: CARVEDILOL
     Dosage: 5 MG
     Route: 065
     Dates: start: 20230610
  26. DIETARY SUPPLEMENT\PROBIOTICS [Concomitant]
     Active Substance: DIETARY SUPPLEMENT\PROBIOTICS NOS
     Indication: Enterocolitis
     Dosage: 3 DF
     Route: 065
     Dates: start: 20230701

REACTIONS (8)
  - Tubulointerstitial nephritis [Not Recovered/Not Resolved]
  - Cystatin C increased [Not Recovered/Not Resolved]
  - Pneumonia [Recovered/Resolved]
  - Acne [Recovered/Resolved]
  - Acne [Recovering/Resolving]
  - Enterocolitis [Recovered/Resolved]
  - Upper respiratory tract infection [Recovered/Resolved]
  - Upper respiratory tract infection [Recovered/Resolved]

NARRATIVE: CASE EVENT DATE: 20220218
